FAERS Safety Report 8572057-8 (Version None)
Quarter: 2012Q3

REPORT INFORMATION
  Report Type: 
  Country: None (occurrence: None)
  Receive Date: 20120806
  Receipt Date: 20120727
  Transmission Date: 20120928
  Serious: Yes (Hospitalization, Other)
  Sender: FDA-Public Use
  Company Number: JP-VERTEX PHARMACEUTICALS INC.-AE-2012-004102

PATIENT
  Age: 65 Year
  Sex: Female

DRUGS (12)
  1. PEGINTERFERON ALFA-2A [Concomitant]
     Indication: HEPATITIS C
     Route: 058
     Dates: start: 20120125, end: 20120215
  2. PEGINTERFERON ALFA-2A [Concomitant]
     Route: 058
     Dates: start: 20120225
  3. REBETOL [Concomitant]
     Indication: HEPATITIS C
     Route: 048
     Dates: start: 20120125, end: 20120228
  4. REBETOL [Concomitant]
     Route: 048
     Dates: start: 20120530
  5. FEROTYM [Concomitant]
     Route: 048
  6. TELAVIC (TELAPREVIR) [Suspect]
     Indication: HEPATITIS C
     Route: 048
     Dates: start: 20120125
  7. EPADEL [Concomitant]
     Route: 048
  8. CLARITIN REDITABS [Concomitant]
     Route: 048
  9. REBETOL [Concomitant]
     Route: 048
     Dates: start: 20120516, end: 20120704
  10. REBETOL [Concomitant]
     Route: 048
     Dates: start: 20120229, end: 20120515
  11. LIVALO [Concomitant]
     Route: 048
  12. PURSENNID [Concomitant]
     Route: 048

REACTIONS (2)
  - ANAEMIA [None]
  - RASH [None]
